FAERS Safety Report 16663619 (Version 1)
Quarter: 2019Q3

REPORT INFORMATION
  Report Type: Spontaneous
  Country: CA (occurrence: CA)
  Receive Date: 20190802
  Receipt Date: 20190802
  Transmission Date: 20191004
  Serious: Yes (Death, Hospitalization, Other)
  Sender: FDA-Public Use
  Company Number: CA-PFIZER INC-2003115607

PATIENT
  Age: 57 Year
  Sex: Female

DRUGS (9)
  1. FUROSEMIDE. [Concomitant]
     Active Substance: FUROSEMIDE
     Dosage: 40 MG, 1X/DAY
     Route: 048
  2. PREDNISONE. [Concomitant]
     Active Substance: PREDNISONE
     Dosage: 2.5 MG, DAILY
     Route: 048
  3. ASA [Concomitant]
     Active Substance: ASPIRIN
  4. CYCLOSPORINE. [Interacting]
     Active Substance: CYCLOSPORINE
     Indication: ILL-DEFINED DISORDER
     Dosage: 65MG 2 EVERY 1 DAY
     Route: 048
     Dates: start: 1989
  5. LIPITOR [Suspect]
     Active Substance: ATORVASTATIN CALCIUM
     Indication: BLOOD CHOLESTEROL INCREASED
     Dosage: 80 MG 1 EVERY 1 DAY
     Route: 048
     Dates: end: 20031016
  6. APO-ALLOPURINOL [Suspect]
     Active Substance: ALLOPURINOL
     Dosage: 300 MG, 1X/DAY
     Route: 048
     Dates: start: 199003, end: 20031016
  7. PLAVIX [Interacting]
     Active Substance: CLOPIDOGREL BISULFATE
     Indication: ANTICOAGULANT THERAPY
     Dosage: 75 MG, 1X/DAY
     Route: 048
     Dates: start: 20030925, end: 20031016
  8. LISINOPRIL. [Concomitant]
     Active Substance: LISINOPRIL
     Dosage: 10MG
     Route: 048
  9. IMURAN [Concomitant]
     Active Substance: AZATHIOPRINE
     Dosage: 25 MG, EVERY OTHER DAY
     Route: 048

REACTIONS (9)
  - Asthenia [Fatal]
  - Myalgia [Fatal]
  - Blood creatine phosphokinase increased [Fatal]
  - Drug interaction [Fatal]
  - Rhabdomyolysis [Fatal]
  - Blood creatine phosphokinase increased [Fatal]
  - Myoglobinuria [Fatal]
  - Drug level increased [Fatal]
  - Muscular weakness [Fatal]

NARRATIVE: CASE EVENT DATE: 20031016
